FAERS Safety Report 21811650 (Version 2)
Quarter: 2023Q1

REPORT INFORMATION
  Report Type: Spontaneous
  Country: US (occurrence: US)
  Receive Date: 20230103
  Receipt Date: 20230104
  Transmission Date: 20230417
  Serious: No
  Sender: FDA-Public Use
  Company Number: US-PFIZER INC-202201402799

PATIENT
  Age: 76 Year
  Sex: Female
  Weight: 58.97 kg

DRUGS (10)
  1. PAXLOVID [Suspect]
     Active Substance: NIRMATRELVIR\RITONAVIR
     Indication: COVID-19 treatment
     Dosage: [PF-07321332 150 MG]/[RITONAVIR 100 MG]; 2X/DAY
     Dates: start: 20221213, end: 20221218
  2. COREG [Concomitant]
     Active Substance: CARVEDILOL
     Dosage: 3.125 MG, 2X/DAY
  3. HYDRALAZINE [Concomitant]
     Active Substance: HYDRALAZINE HYDROCHLORIDE
     Dosage: 10 MG, 2X/DAY
  4. IMDUR [Concomitant]
     Active Substance: ISOSORBIDE MONONITRATE
     Dosage: 30 MG, 1X/DAY
  5. POTASSIUM CHLORIDE [Concomitant]
     Active Substance: POTASSIUM CHLORIDE
     Dosage: 10 MEQ, 1X/DAY (UNIT PROVIDED BY REPORTER ONLY AS ^ME^, NO ADD^L LETTERS)
  6. ROSUVASTATIN [Concomitant]
     Active Substance: ROSUVASTATIN
     Dosage: 0.5 DF, DAILY (40 MG TABLET - HALF TABLET A DAY)
  7. TORSEMIDE [Concomitant]
     Active Substance: TORSEMIDE
     Dosage: 100 MG, DAILY (1 TABLET A DAY)
  8. WARFARIN [Concomitant]
     Active Substance: WARFARIN
     Dosage: 2.5 MG TABLET 4X A WK (REFERRED BY REPORTER INTERCHANGEABLY AS COUMADIN BUT VERIFIED AS WARFARIN)
  9. WARFARIN [Concomitant]
     Active Substance: WARFARIN
     Dosage: 1.25 MG, 2X/WEEK (REFERRED BY REPORTER INTERCHANGEABLY AS COUMADIN BUT VERIFIED AS WARFARIN)
  10. VITAMIN D NOS [Concomitant]
     Active Substance: VITAMIN D NOS
     Dosage: UNK (2000, UNIT NOT PROVIDED)

REACTIONS (2)
  - COVID-19 [Not Recovered/Not Resolved]
  - Disease recurrence [Not Recovered/Not Resolved]

NARRATIVE: CASE EVENT DATE: 20221230
